FAERS Safety Report 13436421 (Version 3)
Quarter: 2017Q2

REPORT INFORMATION
  Report Type: Report from Study
  Country: TW (occurrence: TW)
  Receive Date: 20170413
  Receipt Date: 20170424
  Transmission Date: 20170830
  Serious: Yes (Other)
  Sender: FDA-Public Use
  Company Number: TW-ELI_LILLY_AND_COMPANY-TW201704004134

PATIENT
  Age: 51 Year
  Sex: Female
  Weight: 64 kg

DRUGS (3)
  1. CETUXIMAB. [Suspect]
     Active Substance: CETUXIMAB
     Dosage: UNK UNK, UNKNOWN
     Route: 065
     Dates: start: 201704
  2. CETUXIMAB. [Suspect]
     Active Substance: CETUXIMAB
     Indication: TONGUE CANCER RECURRENT
     Dosage: 250 MG/M2, UNKNOWN
     Route: 065
     Dates: end: 201704
  3. CISPLATIN. [Concomitant]
     Active Substance: CISPLATIN
     Indication: TONGUE CANCER RECURRENT
     Dosage: 100 MG, UNKNOWN
     Route: 065

REACTIONS (1)
  - White blood cell count decreased [Recovered/Resolved]

NARRATIVE: CASE EVENT DATE: 20170407
